FAERS Safety Report 21296640 (Version 1)
Quarter: 2022Q3

REPORT INFORMATION
  Report Type: Spontaneous
  Country: US (occurrence: None)
  Receive Date: 20220902
  Receipt Date: 20220902
  Transmission Date: 20221027
  Serious: No
  Sender: FDA-Public Use
  Company Number: None

PATIENT
  Age: 62 Year
  Sex: Female

DRUGS (2)
  1. ZIEXTENZO [Suspect]
     Active Substance: PEGFILGRASTIM-BMEZ
     Indication: Ovarian disorder
     Dosage: OTHER STRENGTH : 6MG/0.6 ML;?OTHER FREQUENCY : Q 21 DAYS;?
     Route: 058
     Dates: start: 20220718, end: 20220820
  2. ZIEXTENZO [Suspect]
     Active Substance: PEGFILGRASTIM-BMEZ
     Indication: Fallopian tube disorder

REACTIONS (5)
  - Drug hypersensitivity [None]
  - Hypersomnia [None]
  - Pyrexia [None]
  - Chills [None]
  - Feeling cold [None]

NARRATIVE: CASE EVENT DATE: 20220807
